FAERS Safety Report 10214720 (Version 2)
Quarter: 2014Q2

REPORT INFORMATION
  Report Type: Spontaneous
  Country: FR (occurrence: FR)
  Receive Date: 20140603
  Receipt Date: 20140606
  Transmission Date: 20141212
  Serious: Yes (Hospitalization)
  Sender: FDA-Public Use
  Company Number: FR-009507513-1406FRA000336

PATIENT
  Age: 43 Year
  Sex: Male

DRUGS (11)
  1. EMEND [Suspect]
     Dosage: UNK
     Route: 048
     Dates: start: 20140401, end: 20140401
  2. PRIMPERAN [Suspect]
     Dosage: UNK
     Route: 048
     Dates: start: 20140401, end: 20140401
  3. ZOPHREN (ONDANSETRON) [Suspect]
     Indication: PREMEDICATION
     Dosage: UNK
     Route: 065
     Dates: start: 20140401, end: 20140401
  4. TRANXENE [Suspect]
     Indication: PREMEDICATION
     Dosage: UNK
     Route: 065
     Dates: start: 20140401, end: 20140401
  5. IMODIUM [Concomitant]
     Route: 048
  6. SMECTA [Concomitant]
     Route: 048
  7. OXYNORM [Concomitant]
     Route: 048
  8. VERSATIS [Concomitant]
     Route: 003
  9. PARACETAMOL [Concomitant]
     Route: 065
  10. XANAX [Concomitant]
     Route: 048
  11. STILNOX [Concomitant]
     Route: 048

REACTIONS (5)
  - Erythema [Recovered/Resolved]
  - Pruritus [Recovered/Resolved]
  - Abdominal pain [Recovered/Resolved]
  - Nausea [Recovered/Resolved]
  - Vomiting [Recovered/Resolved]
